FAERS Safety Report 23662838 (Version 1)
Quarter: 2024Q1

REPORT INFORMATION
  Report Type: Spontaneous
  Country: CN (occurrence: CN)
  Receive Date: 20240322
  Receipt Date: 20240322
  Transmission Date: 20240410
  Serious: Yes (Life-Threatening, Hospitalization, Other)
  Sender: FDA-Public Use
  Company Number: CN-SUN PHARMACEUTICAL INDUSTRIES LTD-2024R1-437207

PATIENT
  Age: 28 Year
  Sex: Female

DRUGS (7)
  1. DEXAMETHASONE [Suspect]
     Active Substance: DEXAMETHASONE
     Indication: Lung disorder
     Dosage: UNK
     Route: 065
  2. LABETALOL [Suspect]
     Active Substance: LABETALOL\LABETALOL HYDROCHLORIDE
     Indication: Hypertension
     Dosage: 100 MILLIGRAM, BID
     Route: 065
  3. NIFEDIPINE [Suspect]
     Active Substance: NIFEDIPINE
     Indication: Hypertension
     Dosage: UNK
     Route: 065
  4. NOVORAPID [Suspect]
     Active Substance: INSULIN ASPART
     Indication: Blood glucose
     Dosage: UNK
     Route: 058
  5. ADALAT [Suspect]
     Active Substance: NIFEDIPINE
     Indication: Hypertension
     Dosage: 30 MILLIGRAM, QD
     Route: 065
  6. GLUTATHIONE [Suspect]
     Active Substance: GLUTATHIONE
     Indication: Liver injury
     Dosage: UNK
     Route: 065
  7. ADEMETIONINE BUTANEDISULFONATE [Suspect]
     Active Substance: ADEMETIONINE BUTANEDISULFONATE
     Indication: Liver injury
     Dosage: UNK
     Route: 042

REACTIONS (10)
  - Exposure during pregnancy [Unknown]
  - Premature delivery [Unknown]
  - Hypertension [Recovering/Resolving]
  - Phaeochromocytoma [Unknown]
  - Placental insufficiency [Unknown]
  - Hepatic failure [Unknown]
  - Bile acids increased [Unknown]
  - Diabetes mellitus [Recovering/Resolving]
  - Umbilical cord around neck [Unknown]
  - Neoplasm [Recovering/Resolving]
